FAERS Safety Report 13057976 (Version 2)
Quarter: 2017Q1

REPORT INFORMATION
  Report Type: Spontaneous
  Country: CI (occurrence: CI)
  Receive Date: 20161223
  Receipt Date: 20170206
  Transmission Date: 20170428
  Serious: Yes (Other)
  Sender: FDA-Public Use
  Company Number: CI-009507513-1612CIV008241

PATIENT
  Age: 49 Year
  Sex: Male

DRUGS (6)
  1. ANDROTARDYL [Concomitant]
     Active Substance: TESTOSTERONE
     Dosage: 1 IINJECTION FOR 6 MONTHS
     Route: 030
  2. HYDROCORTISONE. [Concomitant]
     Active Substance: HYDROCORTISONE
     Dosage: 10 MG, 2 TABLETS/ DAY, IN THE MORNING AT 8 AM
     Route: 048
  3. GONADOTROPIN, CHORIONIC [Suspect]
     Active Substance: CHORIOGONADOTROPIN ALFA
     Dosage: 5000 UI, EVERY 2 DAYS DURING 3 MONTHS
     Route: 030
     Dates: start: 20161117
  4. MINIRIN (DESMOPRESSIN) [Concomitant]
     Indication: DIABETES INSIPIDUS
     Dosage: SPRAY 3 TIMES PER DAY
  5. LEVOTHYROXINE SODIUM. [Concomitant]
     Active Substance: LEVOTHYROXINE SODIUM
     Dosage: 1 TABLET (50 (UNIT NOT PROVIDED)), QD
     Route: 048
  6. ATORFIT [Concomitant]
     Indication: BLOOD CHOLESTEROL
     Dosage: 20 MG, ONE TABLET PER DAY
     Route: 048

REACTIONS (2)
  - Ocular discomfort [Not Recovered/Not Resolved]
  - Visual field defect [Not Recovered/Not Resolved]

NARRATIVE: CASE EVENT DATE: 20161201
